FAERS Safety Report 8892930 (Version 1)
Quarter: 2012Q4

REPORT INFORMATION
  Report Type: 
  Country: US (occurrence: US)
  Receive Date: 20121107
  Receipt Date: 20121107
  Transmission Date: 20130627
  Serious: No
  Sender: FDA-Public Use
  Company Number: US-AMGEN-USASP2011059494

PATIENT
  Age: 47 Year
  Sex: Female
  Weight: 76.19 kg

DRUGS (5)
  1. ENBREL [Suspect]
     Indication: PRODUCT USED FOR UNKNOWN INDICATION
     Dosage: 50 mg, 2 times/wk
     Route: 058
  2. RESTASIS [Concomitant]
     Dosage: 0.05 %, UNK
  3. CLOBETASOL 0.05% [Concomitant]
  4. ALBUTEROL                          /00139501/ [Concomitant]
     Dosage: 90 mug, UNK
  5. CLARITIN                           /00413701/ [Concomitant]
     Dosage: 10 mg, UNK
     Route: 048

REACTIONS (5)
  - Abdominal pain upper [Unknown]
  - Skin hypopigmentation [Unknown]
  - Skin atrophy [Unknown]
  - Skin discolouration [Not Recovered/Not Resolved]
  - Subcutaneous abscess [Recovered/Resolved]
